FAERS Safety Report 18335051 (Version 12)
Quarter: 2021Q4

REPORT INFORMATION
  Report Type: Report from Study
  Country: None (occurrence: CA)
  Receive Date: 20201001
  Receipt Date: 20211109
  Transmission Date: 20220303
  Serious: Yes (Other)
  Sender: FDA-Public Use
  Company Number: CA-AKCEA THERAPEUTICS-2020IS001158

PATIENT
  Age: 34 Year
  Sex: Male
  Weight: 107.23 kg

DRUGS (7)
  1. TEGSEDI [Suspect]
     Active Substance: INOTERSEN SODIUM
     Indication: Hereditary neuropathic amyloidosis
     Route: 058
     Dates: start: 20190227, end: 202107
  2. DEVICE [Suspect]
     Active Substance: DEVICE
  3. GRAVOL [Suspect]
     Active Substance: DIMENHYDRINATE
     Route: 065
  4. GREEN TEA LEAF [Concomitant]
     Active Substance: GREEN TEA LEAF
     Route: 048
     Dates: start: 2018
  5. PRILOSEC [Concomitant]
     Active Substance: OMEPRAZOLE MAGNESIUM
     Route: 065
     Dates: start: 201712
  6. DIFLUNISAL [Concomitant]
     Active Substance: DIFLUNISAL
     Route: 048
     Dates: start: 201906
  7. RETINOL [Concomitant]
     Active Substance: RETINOL
     Route: 065
     Dates: start: 201902

REACTIONS (18)
  - Nucleated red cells [Recovered/Resolved]
  - Splenomegaly [Recovered/Resolved]
  - Nausea [Recovering/Resolving]
  - Fatigue [Recovering/Resolving]
  - Somnolence [Not Recovered/Not Resolved]
  - Platelet count decreased [Recovered/Resolved]
  - Urticaria [Recovered/Resolved]
  - Vitamin A decreased [Recovered/Resolved]
  - Prealbumin decreased [Recovered/Resolved]
  - Blood creatine phosphokinase increased [Not Recovered/Not Resolved]
  - Haematocrit increased [Recovered/Resolved]
  - Eosinophil count increased [Recovered/Resolved]
  - Renal cyst [Not Recovered/Not Resolved]
  - Blood lactate dehydrogenase increased [Not Recovered/Not Resolved]
  - Blood uric acid increased [Not Recovered/Not Resolved]
  - Chills [Recovering/Resolving]
  - Arthralgia [Recovering/Resolving]
  - Vomiting [Recovering/Resolving]

NARRATIVE: CASE EVENT DATE: 20190611
